FAERS Safety Report 9173595 (Version 1)
Quarter: 2013Q1

REPORT INFORMATION
  Report Type: Spontaneous
  Country: US (occurrence: None)
  Receive Date: 20130318
  Receipt Date: 20130318
  Transmission Date: 20140127
  Serious: No
  Sender: FDA-Public Use
  Company Number: None

PATIENT
  Age: 50 Year
  Sex: Male

DRUGS (2)
  1. VALSARTAN/HCTZ DIOVAN/HCT GENERIC 320/12.5 MYLAN [Suspect]
     Indication: HYPERTENSION
     Route: 048
     Dates: start: 20121226, end: 20130104
  2. DIOVAN [Concomitant]

REACTIONS (14)
  - Pollakiuria [None]
  - Dysgeusia [None]
  - Muscle spasms [None]
  - Abdominal pain upper [None]
  - Muscle spasms [None]
  - Flatulence [None]
  - Dry skin [None]
  - Chapped lips [None]
  - Hair texture abnormal [None]
  - Hypoaesthesia [None]
  - Toothache [None]
  - Lymphadenopathy [None]
  - Temperature intolerance [None]
  - Dysuria [None]
